FAERS Safety Report 11981533 (Version 1)
Quarter: 2016Q1

REPORT INFORMATION
  Report Type: Spontaneous
  Country: US (occurrence: US)
  Receive Date: 20160130
  Receipt Date: 20160130
  Transmission Date: 20160526
  Serious: No
  Sender: FDA-Public Use
  Company Number: US-FRESENIUS KABI-FK201501413

PATIENT
  Age: 15 Year
  Sex: Male
  Weight: 56.7 kg

DRUGS (1)
  1. ROCURONIUM BROMIDE INJECTION [Suspect]
     Active Substance: ROCURONIUM BROMIDE
     Indication: NEPHROSTOMY
     Route: 042
     Dates: start: 20141224, end: 20141224

REACTIONS (1)
  - Drug ineffective [Recovered/Resolved]
